FAERS Safety Report 9283281 (Version 2)
Quarter: 2014Q2

REPORT INFORMATION
  Report Type: Spontaneous
  Country: US (occurrence: US)
  Receive Date: 20130510
  Receipt Date: 20140508
  Transmission Date: 20141212
  Serious: No
  Sender: FDA-Public Use
  Company Number: US-GLAXOSMITHKLINE-A0994050A

PATIENT
  Age: 65 Year
  Sex: Female
  Weight: 70.5 kg

DRUGS (10)
  1. TYKERB [Suspect]
     Indication: BREAST CANCER
     Dosage: 1000MG PER DAY
     Route: 048
     Dates: start: 20120817
  2. HERCEPTIN [Suspect]
  3. WARFARIN [Concomitant]
  4. BACLOFEN [Concomitant]
  5. NEXIUM [Concomitant]
  6. FELODIPINE [Concomitant]
  7. TRAZODONE [Concomitant]
  8. VITAMIN C [Concomitant]
  9. VITAMIN B6 [Concomitant]
  10. VITAMIN B12 [Concomitant]

REACTIONS (6)
  - Diarrhoea [Recovered/Resolved]
  - Skin discolouration [Recovering/Resolving]
  - Onycholysis [Recovering/Resolving]
  - Ingrowing nail [Recovering/Resolving]
  - Skin disorder [Not Recovered/Not Resolved]
  - Local swelling [Not Recovered/Not Resolved]
